FAERS Safety Report 14260538 (Version 2)
Quarter: 2018Q1

REPORT INFORMATION
  Report Type: Spontaneous
  Country: BR (occurrence: BR)
  Receive Date: 20171207
  Receipt Date: 20180313
  Transmission Date: 20180508
  Serious: Yes (Hospitalization)
  Sender: FDA-Public Use
  Company Number: BR-B.I. PHARMACEUTICALS,INC./RIDGEFIELD-2017-BI-064651

PATIENT
  Age: 76 Year
  Sex: Female
  Weight: 66 kg

DRUGS (9)
  1. MICARDIS [Suspect]
     Active Substance: TELMISARTAN
     Route: 048
     Dates: start: 201711
  2. OCUVITE COM/LUTEIN [Concomitant]
     Indication: VITAMIN SUPPLEMENTATION
     Route: 065
     Dates: start: 2010
  3. DIACERINA E SUCUPIRA [Concomitant]
     Indication: ARTHRITIS
     Route: 048
  4. MICARDIS [Suspect]
     Active Substance: TELMISARTAN
     Indication: HYPERTENSION
     Route: 048
     Dates: start: 2007, end: 201711
  5. GLUCOSAMINE [Concomitant]
     Active Substance: GLUCOSAMINE
     Indication: ARTHRITIS
     Route: 065
     Dates: start: 1997
  6. LEXOTAN [Concomitant]
     Active Substance: BROMAZEPAM
     Indication: DEPRESSION
     Route: 048
     Dates: start: 201704
  7. CLOR. VENLAFAXINA [Concomitant]
     Indication: DEPRESSION
     Route: 048
     Dates: start: 201704
  8. AVASTIN [Concomitant]
     Active Substance: BEVACIZUMAB
     Indication: LACRIMATION INCREASED
     Route: 031
     Dates: start: 2013
  9. ATORVASTATINA [Concomitant]
     Active Substance: ATORVASTATIN
     Indication: BLOOD CHOLESTEROL INCREASED
     Route: 048
     Dates: start: 2007

REACTIONS (10)
  - Dysarthria [Recovered/Resolved]
  - Head injury [Recovered/Resolved]
  - Syncope [Recovered/Resolved]
  - Dizziness [Not Recovered/Not Resolved]
  - Thrombosis [Unknown]
  - Amnesia [Recovered/Resolved]
  - Syncope [Recovered/Resolved]
  - Hypotension [Recovered/Resolved]
  - Visual impairment [Recovered/Resolved]
  - Syncope [Not Recovered/Not Resolved]

NARRATIVE: CASE EVENT DATE: 201709
